FAERS Safety Report 25811462 (Version 1)
Quarter: 2025Q3

REPORT INFORMATION
  Report Type: Spontaneous
  Country: EU (occurrence: EU)
  Receive Date: 20250917
  Receipt Date: 20250917
  Transmission Date: 20251021
  Serious: Yes (Other)
  Sender: TEVA
  Company Number: None

PATIENT
  Age: 16 Year
  Sex: Female
  Weight: 64 kg

DRUGS (3)
  1. MOMETASONE [Suspect]
     Active Substance: MOMETASONE
     Indication: Eczema
     Route: 003
     Dates: start: 20230101
  2. TRIAMCINOLONE [Suspect]
     Active Substance: TRIAMCINOLONE
     Indication: Eczema
     Dosage: 3 TIMES A WEEK, TRIAMCINOLONE ACETONIDE / BRAND NAME NOT SPECIFIED
     Route: 003
     Dates: start: 20050301, end: 20240212
  3. HYDROCORTISONE BUTYRATE [Suspect]
     Active Substance: HYDROCORTISONE BUTYRATE
     Indication: Eczema
     Route: 003
     Dates: start: 20050101

REACTIONS (3)
  - Mood swings [Not Recovered/Not Resolved]
  - Eczema [Not Recovered/Not Resolved]
  - Topical steroid withdrawal reaction [Not Recovered/Not Resolved]
